FAERS Safety Report 8992821 (Version 1)
Quarter: 2013Q1

REPORT INFORMATION
  Report Type: Spontaneous
  Country: US (occurrence: US)
  Receive Date: 20130102
  Receipt Date: 20130102
  Transmission Date: 20140127
  Serious: No
  Sender: FDA-Public Use
  Company Number: US-009507513-1212USA010489

PATIENT
  Sex: Male

DRUGS (4)
  1. AZASITE [Suspect]
     Indication: BLEPHARITIS
     Dosage: 2 GTT, QD
     Route: 047
  2. VITAMINS (UNSPECIFIED) [Concomitant]
  3. OMEGA-3 MARINE TRIGLYCERIDES [Concomitant]
  4. CINNAMON [Concomitant]

REACTIONS (4)
  - Eyelid irritation [Not Recovered/Not Resolved]
  - Incorrect route of drug administration [Unknown]
  - Inappropriate schedule of drug administration [Unknown]
  - Product quality issue [Unknown]
